FAERS Safety Report 5609406-6 (Version None)
Quarter: 2008Q1

REPORT INFORMATION
  Report Type: 
  Country: None (occurrence: None)
  Receive Date: 20080131
  Receipt Date: 20080121
  Transmission Date: 20080703
  Serious: Yes (Hospitalization)
  Sender: FDA-Public Use
  Company Number: SE-SANOFI-SYNTHELABO-A01200800641

PATIENT
  Sex: Female
  Weight: 59 kg

DRUGS (7)
  1. ASPIRIN [Concomitant]
     Indication: DRUG USE FOR UNKNOWN INDICATION
     Dosage: UNK
     Route: 065
  2. SIMVASTATIN [Concomitant]
     Indication: DRUG USE FOR UNKNOWN INDICATION
     Route: 048
  3. OMEPRAZOLE [Concomitant]
     Indication: DRUG USE FOR UNKNOWN INDICATION
     Dosage: UNK
     Route: 065
  4. ZOLPIDEM TARTRATE [Suspect]
     Indication: SLEEP DISORDER
     Route: 048
     Dates: start: 20080118, end: 20080118
  5. ZOLPIDEM TARTRATE [Suspect]
     Indication: ACCIDENTAL OVERDOSE
     Route: 048
     Dates: start: 20080118, end: 20080118
  6. ZOLPIDEM TARTRATE [Suspect]
     Route: 048
     Dates: start: 20050101
  7. ZOLPIDEM TARTRATE [Suspect]
     Route: 048
     Dates: start: 20050101

REACTIONS (5)
  - ACCIDENTAL OVERDOSE [None]
  - LOSS OF CONSCIOUSNESS [None]
  - MEDICATION ERROR [None]
  - ROAD TRAFFIC ACCIDENT [None]
  - VISION BLURRED [None]
